FAERS Safety Report 25205667 (Version 1)
Quarter: 2025Q2

REPORT INFORMATION
  Report Type: Spontaneous
  Country: US (occurrence: US)
  Receive Date: 20250417
  Receipt Date: 20250417
  Transmission Date: 20250717
  Serious: Yes (Hospitalization, Other)
  Sender: Haleon PLC
  Company Number: US-HALEON-2238142

PATIENT
  Age: 72 Year
  Sex: Male

DRUGS (2)
  1. SENNA [Suspect]
     Active Substance: SENNOSIDES
     Indication: Constipation
  2. PREDNISONE [Concomitant]
     Active Substance: PREDNISONE
     Indication: Product used for unknown indication

REACTIONS (6)
  - Drug-induced liver injury [Unknown]
  - Jaundice [Unknown]
  - Nausea [Unknown]
  - Pruritus [Unknown]
  - Hepatic necrosis [Unknown]
  - Hepatitis cholestatic [Unknown]
